FAERS Safety Report 21413095 (Version 2)
Quarter: 2022Q4

REPORT INFORMATION
  Report Type: Report from Study
  Country: US (occurrence: US)
  Receive Date: 20221005
  Receipt Date: 20221015
  Transmission Date: 20230113
  Serious: Yes (Death, Hospitalization)
  Sender: FDA-Public Use
  Company Number: US-ABBVIE-4139447

PATIENT
  Sex: Male

DRUGS (2)
  1. DUOPA [Suspect]
     Active Substance: CARBIDOPA\LEVODOPA
     Indication: Product used for unknown indication
     Route: 050
     Dates: start: 20181212
  2. DUOPA [Suspect]
     Active Substance: CARBIDOPA\LEVODOPA

REACTIONS (9)
  - Sepsis [Fatal]
  - COVID-19 [Unknown]
  - Device issue [Unknown]
  - Dementia [Unknown]
  - Medical device change [Unknown]
  - Intentional medical device removal by patient [Unknown]
  - Fall [Unknown]
  - Stoma site discharge [Unknown]
  - Wheelchair user [Unknown]

NARRATIVE: CASE EVENT DATE: 20220101
